FAERS Safety Report 24593717 (Version 2)
Quarter: 2025Q4

REPORT INFORMATION
  Report Type: Report from Study
  Country: US (occurrence: US)
  Receive Date: 20241108
  Receipt Date: 20251231
  Transmission Date: 20260118
  Serious: Yes (Other)
  Sender: PFIZER
  Company Number: US-PFIZER INC-PV202300188615

PATIENT
  Age: 81 Year
  Sex: Male
  Weight: 99.773 kg

DRUGS (5)
  1. VYNDAMAX [Suspect]
     Active Substance: TAFAMIDIS
     Indication: Cardiomyopathy
     Dosage: 61 MG, 1X/DAY
     Route: 048
     Dates: start: 20251212
  2. VYNDAMAX [Suspect]
     Active Substance: TAFAMIDIS
     Indication: Neuropathy peripheral
  3. VYNDAMAX [Suspect]
     Active Substance: TAFAMIDIS
     Indication: Cardiac amyloidosis
  4. VYNDAMAX [Suspect]
     Active Substance: TAFAMIDIS
     Indication: Disease progression
  5. VYNDAMAX [Suspect]
     Active Substance: TAFAMIDIS
     Indication: Amyloidosis

REACTIONS (1)
  - Neuropathy peripheral [Unknown]
